FAERS Safety Report 10994193 (Version 2)
Quarter: 2015Q2

REPORT INFORMATION
  Report Type: Spontaneous
  Country: US (occurrence: US)
  Receive Date: 20150407
  Receipt Date: 20150501
  Transmission Date: 20150821
  Serious: Yes (Life-Threatening, Hospitalization)
  Sender: FDA-Public Use
  Company Number: US-BAYER-2015-084764

PATIENT
  Age: 98 Year
  Sex: Male

DRUGS (1)
  1. XOFIGO [Suspect]
     Active Substance: RADIUM RA-223 DICHLORIDE
     Dosage: 120 MCI, UNK
     Route: 042
     Dates: start: 20150325

REACTIONS (4)
  - Unresponsive to stimuli [None]
  - Cardio-respiratory arrest [Not Recovered/Not Resolved]
  - Pneumonia aspiration [None]
  - Cerebrovascular accident [Not Recovered/Not Resolved]

NARRATIVE: CASE EVENT DATE: 2015
